FAERS Safety Report 10855503 (Version 1)
Quarter: 2015Q1

REPORT INFORMATION
  Report Type: Spontaneous
  Country: US (occurrence: None)
  Receive Date: 20150218
  Receipt Date: 20150218
  Transmission Date: 20150721
  Serious: Yes (Hospitalization)
  Sender: FDA-Public Use
  Company Number: None

PATIENT
  Age: 53 Year
  Sex: Female
  Weight: 63.5 kg

DRUGS (2)
  1. COPAXONE [Suspect]
     Active Substance: GLATIRAMER ACETATE
     Indication: MULTIPLE SCLEROSIS
     Dosage: GIVEN INTO/UNDER THE SKIN
     Route: 058
     Dates: start: 20141022, end: 20141128
  2. COPAXONE [Suspect]
     Active Substance: GLATIRAMER ACETATE
     Indication: MULTIPLE SCLEROSIS
     Dosage: NOVER OPENED/ GIVEN INTO SKIN/UNDER THE SKIN
     Route: 058

REACTIONS (14)
  - General physical health deterioration [None]
  - Sepsis [None]
  - Liver function test abnormal [None]
  - Impaired healing [None]
  - Tooth loss [None]
  - Pneumatosis [None]
  - Bacteraemia [None]
  - Pyrexia [None]
  - Urinary tract infection [None]
  - Visual impairment [None]
  - Cellulitis [None]
  - Dizziness [None]
  - Gingival disorder [None]
  - Product quality issue [None]

NARRATIVE: CASE EVENT DATE: 20141204
